FAERS Safety Report 5176992-2 (Version None)
Quarter: 2006Q4

REPORT INFORMATION
  Report Type: 
  Country: None (occurrence: None)
  Receive Date: 20061218
  Receipt Date: 20060601
  Transmission Date: 20070319
  Serious: Yes (Death, Hospitalization, Other)
  Sender: FDA-Public Use
  Company Number: ES-AVENTIS-200615841GDDC

PATIENT
  Age: 65 Year
  Sex: Female
  Weight: 65 kg

DRUGS (10)
  1. TAXOTERE [Suspect]
     Indication: BREAST CANCER
     Route: 042
     Dates: start: 20030129, end: 20030129
  2. TAXOTERE [Suspect]
     Route: 042
     Dates: start: 20030219, end: 20030219
  3. TAXOTERE [Suspect]
     Route: 042
     Dates: start: 20030312, end: 20030312
  4. TAXOTERE [Suspect]
     Route: 042
     Dates: start: 20030402, end: 20030402
  5. ADRIAMYCIN                         /00330901/ [Suspect]
     Indication: BREAST CANCER
     Route: 042
     Dates: start: 20021104, end: 20030108
  6. CYCLOPHOSPHAMIDE [Suspect]
     Indication: BREAST CANCER
     Route: 042
     Dates: start: 20021104, end: 20030108
  7. RADIOTHERAPY [Suspect]
     Indication: BREAST CANCER
     Dosage: DOSE: 114 GY TO RIGHT BREAST CHEST WALL AREA, RIGHT AXILLA, AND RIGHT SUPRACLAVICULAR AREA
     Dates: start: 20030422, end: 20030619
  8. NOLVADEX [Concomitant]
     Indication: BREAST CANCER
     Route: 048
     Dates: start: 20030423
  9. TAMOXIFEN CITRATE [Concomitant]
     Dates: start: 20030423, end: 20050425
  10. AROMASIL [Concomitant]
     Dates: start: 20050429

REACTIONS (13)
  - ACUTE MYELOID LEUKAEMIA [None]
  - ANOREXIA [None]
  - ASTHENIA [None]
  - BONE MARROW FAILURE [None]
  - CEREBRAL HAEMORRHAGE [None]
  - HYPOTENSION [None]
  - INJURY [None]
  - KLEBSIELLA INFECTION [None]
  - MALAISE [None]
  - PLEURAL EFFUSION [None]
  - SYNCOPE [None]
  - THORACIC VERTEBRAL FRACTURE [None]
  - URINARY TRACT INFECTION [None]
